FAERS Safety Report 18922295 (Version 1)
Quarter: 2021Q1

REPORT INFORMATION
  Report Type: Spontaneous
  Country: US (occurrence: US)
  Receive Date: 20210222
  Receipt Date: 20210222
  Transmission Date: 20210420
  Serious: No
  Sender: FDA-Public Use
  Company Number: None

PATIENT
  Age: 82 Year
  Sex: Female
  Weight: 52 kg

DRUGS (16)
  1. CLOPIDOGREL 75MG PO DAILY [Concomitant]
     Dates: start: 20210122, end: 20210128
  2. REGULAR INSULIN SSI TIDAC AND HS [Concomitant]
     Dates: start: 20210126, end: 20210128
  3. VIT C 1000MG DAILY [Concomitant]
     Dates: start: 20210122, end: 20210128
  4. AZITHROMYCIN 500MG IV DAILY [Concomitant]
     Dates: start: 20210122, end: 20210124
  5. ADVAIR HFA 115/21 2 PUFFS INH BID [Concomitant]
     Dates: start: 20210124, end: 20210128
  6. NIFEDIPINE ER 60MG QAM AND 30MG PO QHS [Concomitant]
     Dates: start: 20210122, end: 20210128
  7. ZINC 220MG DAILY [Concomitant]
     Dates: start: 20210122, end: 20210128
  8. ASPIRIN EC 81MG DAILY [Concomitant]
     Dates: start: 20210122, end: 20210128
  9. ATORVASTATIN 20MG QHS [Concomitant]
     Dates: start: 20210127, end: 20210128
  10. REMDESIVIR. [Suspect]
     Active Substance: REMDESIVIR
     Indication: COVID-19 PNEUMONIA
     Dosage: ?          OTHER FREQUENCY:200MG X1, 100MG/D;?
     Route: 042
     Dates: start: 20210122, end: 20210124
  11. LEVOTHYROXINE 75MCG PO DAILY [Concomitant]
     Dates: start: 20210122, end: 20210128
  12. SODIUM BICARBONATE 650MG PO TID [Concomitant]
     Dates: start: 20210121, end: 20210128
  13. CARVEDILOL 12.5MG PO BID [Concomitant]
     Dates: start: 20210122, end: 20210128
  14. CEFTRIAXONE 1G IV DAILY [Concomitant]
     Dates: start: 20210122, end: 20210124
  15. DEXAMETHASONE 6MG PO DAILY [Concomitant]
     Active Substance: DEXAMETHASONE
     Dates: start: 20210122, end: 20210128
  16. HEPARIN 5000 UNITS SQ Q8H [Concomitant]
     Dates: start: 20210121, end: 20210128

REACTIONS (3)
  - Dialysis [None]
  - Blood creatinine increased [None]
  - Proteinuria [None]

NARRATIVE: CASE EVENT DATE: 20210125
